FAERS Safety Report 21837655 (Version 2)
Quarter: 2023Q1

REPORT INFORMATION
  Report Type: Spontaneous
  Country: US (occurrence: US)
  Receive Date: 20230109
  Receipt Date: 20230217
  Transmission Date: 20230418
  Serious: No
  Sender: FDA-Public Use
  Company Number: US-PFIZER INC-202201402780

PATIENT
  Age: 53 Year
  Sex: Female

DRUGS (9)
  1. LEVOXYL [Suspect]
     Active Substance: LEVOTHYROXINE SODIUM
     Indication: Hypothyroidism
     Dosage: 112 UG, 1X/DAY
     Dates: start: 2019, end: 20230107
  2. LEVOXYL [Suspect]
     Active Substance: LEVOTHYROXINE SODIUM
     Dosage: 125 UG
     Dates: start: 20230107
  3. WELLBUTRIN XL [Concomitant]
     Active Substance: BUPROPION HYDROCHLORIDE
     Dosage: 300 MG, 1X/DAY
  4. SERTRALINE HYDROCHLORIDE [Concomitant]
     Active Substance: SERTRALINE HYDROCHLORIDE
     Dosage: 100 MG, 1X/DAY
  5. ATORVASTATIN CALCIUM [Concomitant]
     Active Substance: ATORVASTATIN CALCIUM
     Dosage: 10 MG, 1X/DAY
  6. ARMODAFINIL [Concomitant]
     Active Substance: ARMODAFINIL
     Dosage: 100 MG, 1X/DAY
  7. ALLERTEC [CETIRIZINE] [Concomitant]
     Dosage: 10 MG, 1X/DAY
  8. KIRKLAND SIGNATURE ALLERCLEAR [Concomitant]
     Active Substance: LORATADINE
     Dosage: 10 MG, 1X/DAY
  9. MAGNESIUM [Concomitant]
     Active Substance: MAGNESIUM
     Dosage: 600 MG, 1X/DAY

REACTIONS (5)
  - Therapeutic product effect incomplete [Unknown]
  - Full blood count increased [Unknown]
  - Product dose omission issue [Unknown]
  - Product supply issue [Unknown]
  - Lethargy [Unknown]

NARRATIVE: CASE EVENT DATE: 20221227
